FAERS Safety Report 9472582 (Version 1)
Quarter: 2013Q3

REPORT INFORMATION
  Report Type: Spontaneous
  Country: US (occurrence: US)
  Receive Date: 20130823
  Receipt Date: 20130823
  Transmission Date: 20140515
  Serious: Yes (Other)
  Sender: FDA-Public Use
  Company Number: PHEH2013US017766

PATIENT
  Sex: Female

DRUGS (4)
  1. SANDOSTATIN LAR DEPOT [Suspect]
     Indication: PANCREATITIS CHRONIC
     Dosage: 30 MG, UNK
  2. SANDOSTATIN LAR DEPOT [Suspect]
     Indication: OFF LABEL USE
  3. ATENOLOL [Concomitant]
  4. OXYCODONE [Concomitant]
     Indication: PAIN
     Dosage: 30 MG, Q6H

REACTIONS (3)
  - Pancreatic carcinoma [Unknown]
  - Arthralgia [Unknown]
  - Malaise [Unknown]
